FAERS Safety Report 7198965-0 (Version None)
Quarter: 2010Q4

REPORT INFORMATION
  Report Type: 
  Country: None (occurrence: None)
  Receive Date: 20101228
  Receipt Date: 20101223
  Transmission Date: 20110411
  Serious: Yes (Other)
  Sender: FDA-Public Use
  Company Number: FR-BIOGENIDEC-2010BI030394

PATIENT
  Age: 31 Year
  Sex: Female

DRUGS (5)
  1. TYSABRI [Suspect]
     Indication: MULTIPLE SCLEROSIS
     Route: 042
     Dates: start: 20090811
  2. CONTRACEPTIVE PILL [Concomitant]
     Indication: CONTRACEPTION
  3. LAROXYL [Concomitant]
     Indication: NEURALGIA
  4. RIVOTRIL [Concomitant]
     Dates: end: 20101201
  5. MODAFINIL [Concomitant]
     Indication: FATIGUE
     Dates: end: 20101201

REACTIONS (3)
  - ABORTION SPONTANEOUS [None]
  - DRUG EXPOSURE DURING PREGNANCY [None]
  - PREGNANCY ON ORAL CONTRACEPTIVE [None]
